FAERS Safety Report 11246876 (Version 1)
Quarter: 2015Q3

REPORT INFORMATION
  Report Type: Spontaneous
  Country: US (occurrence: US)
  Receive Date: 20150708
  Receipt Date: 20150708
  Transmission Date: 20151125
  Serious: No
  Sender: FDA-Public Use
  Company Number: US-BIOGENIDEC-2015BI094150

PATIENT
  Age: 44 Year
  Sex: Female

DRUGS (5)
  1. AMITRIPTYLINE [Concomitant]
     Active Substance: AMITRIPTYLINE
  2. SIMVASTATIN. [Concomitant]
     Active Substance: SIMVASTATIN
  3. AVONEX [Suspect]
     Active Substance: INTERFERON BETA-1A
     Indication: MULTIPLE SCLEROSIS
     Route: 030
     Dates: start: 200511
  4. PAROXETINE [Concomitant]
     Active Substance: PAROXETINE\PAROXETINE HYDROCHLORIDE
  5. OLCADIL [Concomitant]
     Active Substance: CLOXAZOLAM

REACTIONS (5)
  - Vision blurred [Unknown]
  - Blood pressure decreased [Unknown]
  - Fatigue [Unknown]
  - Headache [Unknown]
  - Paraesthesia [Unknown]
